FAERS Safety Report 10983480 (Version 1)
Quarter: 2015Q2

REPORT INFORMATION
  Report Type: Spontaneous
  Country: US (occurrence: None)
  Receive Date: 20150402
  Receipt Date: 20150402
  Transmission Date: 20150821
  Serious: No
  Sender: FDA-Public Use
  Company Number: None

PATIENT
  Age: 60 Year
  Sex: Female

DRUGS (1)
  1. HARVONI [Suspect]
     Active Substance: LEDIPASVIR\SOFOSBUVIR
     Indication: CHRONIC HEPATITIS
     Dosage: 1 TABLET
     Route: 048
     Dates: start: 20150307

REACTIONS (7)
  - Neuralgia [None]
  - Nausea [None]
  - Dizziness [None]
  - Fatigue [None]
  - Headache [None]
  - Depressed level of consciousness [None]
  - Influenza like illness [None]

NARRATIVE: CASE EVENT DATE: 20150308
